FAERS Safety Report 18225001 (Version 1)
Quarter: 2020Q3

REPORT INFORMATION
  Report Type: Spontaneous
  Country: JP (occurrence: JP)
  Receive Date: 20200903
  Receipt Date: 20200903
  Transmission Date: 20201103
  Serious: Yes (Other)
  Sender: FDA-Public Use
  Company Number: JP-ROCHE-2669862

PATIENT
  Sex: Male

DRUGS (4)
  1. LUCENTIS [Suspect]
     Active Substance: RANIBIZUMAB
     Route: 050
     Dates: start: 20160801
  2. EYLEA [Suspect]
     Active Substance: AFLIBERCEPT
     Indication: AGE-RELATED MACULAR DEGENERATION
     Dosage: 4 TIMES
     Route: 050
     Dates: start: 20151214, end: 20160509
  3. LUCENTIS [Suspect]
     Active Substance: RANIBIZUMAB
     Indication: AGE-RELATED MACULAR DEGENERATION
     Route: 050
     Dates: start: 20160606
  4. EYLEA [Suspect]
     Active Substance: AFLIBERCEPT
     Dosage: 19 TIMES
     Route: 050
     Dates: start: 20160905, end: 20200420

REACTIONS (5)
  - Therapeutic response decreased [Unknown]
  - Visual acuity reduced [Unknown]
  - Concomitant disease aggravated [Unknown]
  - Corneal dystrophy [Unknown]
  - Cataract [Unknown]
